FAERS Safety Report 10041475 (Version 1)
Quarter: 2014Q1

REPORT INFORMATION
  Report Type: Spontaneous
  Country: US (occurrence: None)
  Receive Date: 20140326
  Receipt Date: 20140326
  Transmission Date: 20141002
  Serious: Yes (Other)
  Sender: FDA-Public Use
  Company Number: None

PATIENT
  Sex: Female

DRUGS (1)
  1. SOLU-MEDROL NOT PROVIDED [Suspect]
     Dosage: NOT PROVIDED

REACTIONS (6)
  - Weight increased [None]
  - Anxiety [None]
  - Dyspnoea [None]
  - Fatigue [None]
  - Insomnia [None]
  - Activities of daily living impaired [None]
